FAERS Safety Report 7312101-9 (Version None)
Quarter: 2011Q1

REPORT INFORMATION
  Report Type: 
  Country: None (occurrence: None)
  Receive Date: 20110224
  Receipt Date: 20110211
  Transmission Date: 20110831
  Serious: Yes (Other)
  Sender: FDA-Public Use
  Company Number: US-ELI_LILLY_AND_COMPANY-US200912000580

PATIENT
  Sex: Female

DRUGS (13)
  1. CLONIDINE [Concomitant]
  2. CYMBALTA [Concomitant]
     Indication: PAIN
     Dosage: 90 MG, DAILY (1/D)
  3. POTASSIUM [Concomitant]
  4. FUROSEMIDE [Concomitant]
  5. ATACAND [Concomitant]
  6. XALATAN [Concomitant]
  7. FORTEO [Suspect]
     Indication: OSTEOPOROSIS
     Dosage: 20 UG, DAILY (1/D)
     Dates: start: 20091119
  8. FORTEO [Suspect]
     Dosage: 20 UG, DAILY (1/D)
  9. NISOLDIPINE [Concomitant]
  10. LIPITOR [Concomitant]
  11. FORTEO [Suspect]
     Dosage: 20 UG, DAILY (1/D)
  12. RESTASIS [Concomitant]
  13. METOPROLOL TARTRATE [Concomitant]

REACTIONS (9)
  - BONE PAIN [None]
  - OEDEMA PERIPHERAL [None]
  - PELVIC PAIN [None]
  - PAIN IN EXTREMITY [None]
  - NAUSEA [None]
  - NEOPLASM MALIGNANT [None]
  - BREAST ENLARGEMENT [None]
  - MELANOCYTIC NAEVUS [None]
  - PAIN [None]
